FAERS Safety Report 5479187-8 (Version None)
Quarter: 2007Q4

REPORT INFORMATION
  Report Type: 
  Country: None (occurrence: None)
  Receive Date: 20071002
  Receipt Date: 20070917
  Transmission Date: 20080405
  Serious: Yes (Congenital Anomaly)
  Sender: FDA-Public Use
  Company Number: 060003M07GBR

PATIENT

DRUGS (2)
  1. CLOMIPHENE CITRATE [Suspect]
     Dosage: I.U.
     Route: 015
  2. CLARITHROMYCIN [Concomitant]

REACTIONS (2)
  - CONGENITAL ANOMALY [None]
  - DRUG EXPOSURE DURING PREGNANCY [None]
